FAERS Safety Report 9012907 (Version 6)
Quarter: 2013Q1

REPORT INFORMATION
  Report Type: Report from Study
  Country: IT (occurrence: IT)
  Receive Date: 20130114
  Receipt Date: 20130301
  Transmission Date: 20140127
  Serious: Yes (Hospitalization, Other)
  Sender: FDA-Public Use
  Company Number: IT-VERTEX PHARMACEUTICALS INC.-2012-026164

PATIENT
  Age: 62 Year
  Sex: Male
  Weight: 82 kg

DRUGS (8)
  1. VX-950 (TELAPREVIR) [Suspect]
     Indication: HEPATITIS C
     Dosage: 750 MG, TID
     Route: 048
     Dates: start: 20121112, end: 20121207
  2. PEGINTERFERON ALFA-2A [Suspect]
     Indication: HEPATITIS C
     Dosage: DOSAGE FORM: INJECTION
     Route: 058
     Dates: start: 20121112, end: 20121203
  3. RIBAVIRIN [Suspect]
     Indication: HEPATITIS C
     Dosage: DOSAGE FORM: TABLET, 3 DOSES IN AM, 3 DOSES IN PM
     Route: 048
     Dates: start: 20121112, end: 20121203
  4. RIBAVIRIN [Suspect]
     Dosage: DOSAGE FORM: TABLET, 2 DOSES IN AM, 2 DOSES IN PM
     Route: 048
     Dates: start: 20121204, end: 20121207
  5. PARACETAMOL [Concomitant]
     Indication: MYALGIA
     Dosage: 500 MG, QD
     Route: 048
     Dates: start: 20121112, end: 20121112
  6. PARACETAMOL [Concomitant]
     Indication: ARTHRALGIA
     Dosage: 500 MG, BID
     Route: 048
     Dates: start: 20121120
  7. PARACETAMOL [Concomitant]
     Indication: PYREXIA
  8. FOLIC ACID [Concomitant]
     Indication: ASTHENIA
     Dosage: 5 MG, QD
     Route: 048
     Dates: start: 20121201

REACTIONS (2)
  - Neutropenia [Recovered/Resolved]
  - Pneumonia legionella [Recovered/Resolved]
